FAERS Safety Report 5507982-5 (Version None)
Quarter: 2007Q4

REPORT INFORMATION
  Report Type: 
  Country: None (occurrence: None)
  Receive Date: 20071106
  Receipt Date: 20070920
  Transmission Date: 20080405
  Serious: Yes (Hospitalization)
  Sender: FDA-Public Use
  Company Number: HN-ROCHE-527337

PATIENT
  Age: 60 Year
  Sex: Female

DRUGS (2)
  1. BONIVA [Suspect]
     Indication: OSTEOPOROSIS
     Route: 048
     Dates: start: 20061221, end: 20070821
  2. BONIVA [Suspect]
     Route: 048
     Dates: start: 20071021

REACTIONS (6)
  - CHOLELITHIASIS [None]
  - PAIN [None]
  - PANCREATITIS [None]
  - PNEUMONIA [None]
  - PYREXIA [None]
  - VOMITING [None]
